FAERS Safety Report 8578018-7 (Version None)
Quarter: 2012Q3

REPORT INFORMATION
  Report Type: 
  Country: None (occurrence: None)
  Receive Date: 20120726
  Receipt Date: 20120718
  Transmission Date: 20120928
  Serious: Yes (Other)
  Sender: FDA-Public Use
  Company Number: 2012SA051070

PATIENT
  Age: 74 Year
  Sex: Female

DRUGS (1)
  1. MENTHOL [Suspect]
     Indication: NECK PAIN
     Dates: start: 20120714, end: 20120714

REACTIONS (3)
  - PAIN [None]
  - CHEMICAL BURN OF SKIN [None]
  - APPLICATION SITE BURN [None]
